FAERS Safety Report 6287709-2 (Version None)
Quarter: 2009Q3

REPORT INFORMATION
  Report Type: 
  Country: None (occurrence: None)
  Receive Date: 20090727
  Receipt Date: 20090727
  Transmission Date: 20100115
  Serious: Yes (Death)
  Sender: FDA-Public Use
  Company Number: None

PATIENT
  Age: 68 Year
  Sex: Male
  Weight: 51.4 kg

DRUGS (5)
  1. MOBIC [Suspect]
     Dosage: 15 MG, DAILY, PO
     Route: 048
  2. TRAMADOL HCL [Concomitant]
  3. MOBIC [Concomitant]
  4. HYDROCHLOROTHIAZIDE [Concomitant]
  5. LORTAB [Concomitant]

REACTIONS (6)
  - DUODENAL ULCER [None]
  - GASTROINTESTINAL HAEMORRHAGE [None]
  - GENERAL PHYSICAL HEALTH DETERIORATION [None]
  - PNEUMONIA [None]
  - RESPIRATORY FAILURE [None]
  - UNRESPONSIVE TO STIMULI [None]
